FAERS Safety Report 5449896-5 (Version None)
Quarter: 2007Q3

REPORT INFORMATION
  Report Type: 
  Country: None (occurrence: None)
  Receive Date: 20070907
  Receipt Date: 20070831
  Transmission Date: 20080115
  Serious: Yes (Death, Hospitalization)
  Sender: FDA-Public Use
  Company Number: 163-20785-07090024

PATIENT
  Age: 81 Year
  Sex: Female

DRUGS (1)
  1. THALOMID [Suspect]
     Indication: GAMMOPATHY
     Dosage: 300 M G, 6 IN 1 D, ORAL
     Route: 048
     Dates: start: 20020419, end: 20070701

REACTIONS (1)
  - PATHOLOGICAL FRACTURE [None]
